FAERS Safety Report 6219621-9 (Version None)
Quarter: 2009Q2

REPORT INFORMATION
  Report Type: 
  Country: None (occurrence: None)
  Receive Date: 20090609
  Receipt Date: 20090602
  Transmission Date: 20091009
  Serious: Yes (Other)
  Sender: FDA-Public Use
  Company Number: PHHO2009DK06289

PATIENT
  Sex: Male

DRUGS (4)
  1. ZOLEDRONIC ACID [Suspect]
     Dosage: 4 MG
     Route: 042
     Dates: start: 20061212, end: 20090210
  2. VITAMIN D [Concomitant]
  3. CALCIUM [Concomitant]
  4. VEPICOMBIN [Concomitant]

REACTIONS (3)
  - PERIODONTAL DISEASE [None]
  - TOOTH ABSCESS [None]
  - TOOTH EXTRACTION [None]
